FAERS Safety Report 8457536 (Version 2)
Quarter: 2012Q4

REPORT INFORMATION
  Report Type: 
  Country: US (occurrence: US)
  Receive Date: 20120314
  Receipt Date: 20121213
  Transmission Date: 20130627
  Serious: No
  Sender: FDA-Public Use
  Company Number: US-PFIZER INC-2012063626

PATIENT
  Age: 68 Year
  Sex: Male
  Weight: 87.53 kg

DRUGS (6)
  1. LIPITOR [Suspect]
     Indication: HIGH CHOLESTEROL
     Dosage: 40 mg, daily
     Dates: start: 200511, end: 201112
  2. ATORVASTATIN CALCIUM [Suspect]
     Indication: HIGH CHOLESTEROL
     Dosage: 40 mg, daily
     Dates: start: 201201, end: 201201
  3. AGGRENOX [Concomitant]
     Indication: STROKE
     Dosage: UNK, two times a day
     Dates: start: 2005
  4. METOPROLOL [Concomitant]
     Indication: HEART DISORDER
     Dosage: UNK, two times a day
     Dates: start: 2005
  5. AMLODIPINE [Concomitant]
     Indication: BLOOD PRESSURE HIGH
     Dosage: 5 mg, daily
     Dates: start: 2005
  6. LISINOPRIL [Concomitant]
     Indication: BLOOD PRESSURE HIGH
     Dosage: 10 mg, daily
     Dates: start: 2005

REACTIONS (1)
  - Low density lipoprotein increased [Unknown]
